FAERS Safety Report 24656413 (Version 1)
Quarter: 2024Q4

REPORT INFORMATION
  Report Type: Spontaneous
  Country: US (occurrence: US)
  Receive Date: 20241124
  Receipt Date: 20241124
  Transmission Date: 20250114
  Serious: No
  Sender: BRISTOL-MYERS SQUIBB COMPANY
  Company Number: US-BRISTOL-MYERS SQUIBB COMPANY-2024-179453

PATIENT
  Age: 34 Year
  Sex: Male

DRUGS (2)
  1. COBENFY [Suspect]
     Active Substance: TROSPIUM CHLORIDE\XANOMELINE
     Indication: Schizophrenia
     Dosage: DOSE : 100 MG / 20 MG;  FREQ : TWICE A DAY FOR THE LAST TWO WEEKS
     Route: 048
     Dates: start: 2024
  2. CLOZAPINE [Concomitant]
     Active Substance: CLOZAPINE
     Indication: Product used for unknown indication

REACTIONS (1)
  - Irritability [Unknown]

NARRATIVE: CASE EVENT DATE: 20241113
